FAERS Safety Report 10939978 (Version 1)
Quarter: 2015Q1

REPORT INFORMATION
  Report Type: Spontaneous
  Country: US (occurrence: None)
  Receive Date: 20150212
  Receipt Date: 20150212
  Transmission Date: 20150721
  Serious: No
  Sender: FDA-Public Use
  Company Number: TPA2011A03030

PATIENT
  Age: 54 Year
  Sex: Female
  Weight: 84.82 kg

DRUGS (11)
  1. ULORIC [Suspect]
     Active Substance: FEBUXOSTAT
     Indication: BLOOD URIC ACID INCREASED
     Route: 048
     Dates: start: 20110608, end: 20110608
  2. NIASPAN [Concomitant]
     Active Substance: NIACIN
  3. HYDRODIURIL [Concomitant]
     Active Substance: HYDROCHLOROTHIAZIDE
  4. ZETIA [Concomitant]
     Active Substance: EZETIMIBE
  5. VITAMINS [Concomitant]
     Active Substance: VITAMINS
  6. CRESTOR [Concomitant]
     Active Substance: ROSUVASTATIN CALCIUM
  7. ULORIC [Suspect]
     Active Substance: FEBUXOSTAT
     Indication: GOUT
     Route: 048
     Dates: start: 20110608, end: 20110608
  8. MOTRIN [Concomitant]
     Active Substance: IBUPROFEN
  9. THYROID [Concomitant]
     Active Substance: LEVOTHYROXINE\LIOTHYRONINE
  10. QUINAPRIL [Concomitant]
     Active Substance: QUINAPRIL\QUINAPRIL HYDROCHLORIDE
  11. VITAMIN D [Concomitant]
     Active Substance: CHOLECALCIFEROL

REACTIONS (4)
  - Tremor [None]
  - Dyspnoea [None]
  - Wheezing [None]
  - Palpitations [None]

NARRATIVE: CASE EVENT DATE: 20110608
